FAERS Safety Report 9647528 (Version 1)
Quarter: 2013Q4

REPORT INFORMATION
  Report Type: Report from Study
  Country: AR (occurrence: AR)
  Receive Date: 20131028
  Receipt Date: 20131028
  Transmission Date: 20140711
  Serious: Yes (Other)
  Sender: FDA-Public Use
  Company Number: AR-ROCHE-1293713

PATIENT
  Sex: Female

DRUGS (1)
  1. RANIBIZUMAB [Suspect]
     Indication: THROMBOSIS
     Route: 050
     Dates: start: 201305

REACTIONS (4)
  - Cataract [Recovering/Resolving]
  - Eye discharge [Recovering/Resolving]
  - Visual impairment [Unknown]
  - Diabetes mellitus [Recovering/Resolving]
